FAERS Safety Report 9093110 (Version 1)
Quarter: 2013Q1

REPORT INFORMATION
  Report Type: Spontaneous
  Country: US (occurrence: US)
  Receive Date: 20130218
  Receipt Date: 20130218
  Transmission Date: 20140127
  Serious: No
  Sender: FDA-Public Use
  Company Number: US-B.I. PHARMACEUTICALS,INC./RIDGEFIELD-2013-BI-04107BP

PATIENT
  Age: 67 None
  Sex: Male
  Weight: 129 kg

DRUGS (3)
  1. SPIRIVA [Suspect]
     Indication: ASTHMA
     Dosage: 18 MCG
     Route: 055
     Dates: start: 2012
  2. ADVAIR [Concomitant]
     Indication: ASTHMA
     Dosage: 1000 MCG
     Route: 055
     Dates: start: 2006
  3. XOLAIR [Concomitant]
     Indication: ASTHMA
     Dosage: 300 MG
     Route: 058
     Dates: start: 2009

REACTIONS (4)
  - Influenza [Not Recovered/Not Resolved]
  - Wheezing [Not Recovered/Not Resolved]
  - Product quality issue [Recovered/Resolved]
  - Product quality issue [Recovered/Resolved]
